FAERS Safety Report 19811463 (Version 2)
Quarter: 2021Q3

REPORT INFORMATION
  Report Type: Spontaneous
  Country: JP (occurrence: JP)
  Receive Date: 20210909
  Receipt Date: 20210928
  Transmission Date: 20211014
  Serious: Yes (Hospitalization, Other)
  Sender: FDA-Public Use
  Company Number: JP-PFIZER INC-202101113845

PATIENT
  Age: 69 Year
  Sex: Female
  Weight: 44 kg

DRUGS (3)
  1. INLYTA [Suspect]
     Active Substance: AXITINIB
     Indication: RENAL CANCER
     Dosage: 5 MG, 2X/DAY
     Route: 048
     Dates: start: 20210709, end: 20210716
  2. INLYTA [Suspect]
     Active Substance: AXITINIB
     Dosage: 10 MG, 2X/DAY
     Route: 048
     Dates: start: 20210717, end: 20210804
  3. BAVENCIO [Concomitant]
     Active Substance: AVELUMAB

REACTIONS (4)
  - Hypercalcaemia [Recovering/Resolving]
  - Fall [Recovering/Resolving]
  - Fracture [Recovering/Resolving]
  - Cardiac dysfunction [Recovering/Resolving]

NARRATIVE: CASE EVENT DATE: 20210804
